FAERS Safety Report 4315576-2 (Version None)
Quarter: 2004Q1

REPORT INFORMATION
  Report Type: 
  Country: None (occurrence: None)
  Receive Date: 20040311
  Receipt Date: 20040311
  Transmission Date: 20041129
  Serious: Yes (Hospitalization)
  Sender: FDA-Public Use
  Company Number: None

PATIENT
  Sex: Male
  Weight: 100 kg

DRUGS (5)
  1. ARIPRAZOLE [Suspect]
     Indication: BIPOLAR DISORDER
     Dosage: 10 MG PO QD
     Route: 048
     Dates: start: 20040216, end: 20040302
  2. DIVALPROEX SODIUM [Concomitant]
  3. TEMAZEPAM [Concomitant]
  4. LORAZEPAM [Concomitant]
  5. PANTOPRAZOLE [Concomitant]

REACTIONS (4)
  - CATATONIA [None]
  - DYSPHAGIA [None]
  - HYPERTONIA [None]
  - MUSCULOSKELETAL STIFFNESS [None]
